FAERS Safety Report 6756702-5 (Version None)
Quarter: 2010Q2

REPORT INFORMATION
  Report Type: 
  Country: None (occurrence: None)
  Receive Date: 20100604
  Receipt Date: 20100521
  Transmission Date: 20101027
  Serious: Yes (Hospitalization, Other)
  Sender: FDA-Public Use
  Company Number: US-ELI_LILLY_AND_COMPANY-US201005006539

PATIENT
  Sex: Female

DRUGS (11)
  1. FORTEO [Suspect]
     Indication: OSTEOPOROSIS
     Dosage: 20 UG, DAILY (1/D)
     Dates: start: 20080101
  2. LEVOTHYROXINE SODIUM [Concomitant]
     Dosage: 0.125 MG, DAILY (1/D)
  3. LEVOTHYROXINE SODIUM [Concomitant]
     Dosage: 0.025 MG, QOD
  4. GABAPENTIN [Concomitant]
     Dosage: 200 MG, 3/D
  5. PREDNISONE [Concomitant]
     Dosage: 5 MG, DAILY (1/D)
  6. VITAMIN D [Concomitant]
     Dosage: 2000 U, DAILY (1/D)
  7. CALCIUM                                 /N/A/ [Concomitant]
     Dosage: 1300 MG, DAILY (1/D)
  8. FUROSEMIDE [Concomitant]
     Dosage: 20 MG, DAILY (1/D)
  9. KLOR-CON [Concomitant]
     Dosage: 1200 MG, DAILY (1/D)
  10. AMITRIPTYLINE [Concomitant]
     Dosage: 10 MG, UNK
  11. HYDROCODONE BITARTRATE AND ACETAMINOPHEN [Concomitant]
     Dosage: 7.5MG/500MG

REACTIONS (3)
  - ERYTHEMA [None]
  - LOWER LIMB FRACTURE [None]
  - OEDEMA PERIPHERAL [None]
